FAERS Safety Report 6094608-8 (Version None)
Quarter: 2009Q1

REPORT INFORMATION
  Report Type: 
  Country: None (occurrence: None)
  Receive Date: 20090226
  Receipt Date: 20090219
  Transmission Date: 20090719
  Serious: Yes (Other)
  Sender: FDA-Public Use
  Company Number: PHHY2009JP02321

PATIENT
  Age: 51 Year
  Sex: Male

DRUGS (1)
  1. GLEEVEC [Suspect]
     Dosage: 400 MG/DAY

REACTIONS (3)
  - FACE OEDEMA [None]
  - GASTROINTESTINAL STROMAL TUMOUR [None]
  - PANCREATICODUODENECTOMY [None]
